FAERS Safety Report 10453389 (Version 1)
Quarter: 2014Q3

REPORT INFORMATION
  Report Type: Spontaneous
  Country: IT (occurrence: IT)
  Receive Date: 20140915
  Receipt Date: 20140915
  Transmission Date: 20150326
  Serious: Yes (Other)
  Sender: FDA-Public Use
  Company Number: PHHY2014IT115430

PATIENT
  Age: 22 Year
  Sex: Male

DRUGS (8)
  1. DEPAKINE CHRONO [Suspect]
     Active Substance: VALPROATE SODIUM
     Dosage: 1 DF, DAILY
     Route: 048
     Dates: start: 20140408, end: 20140408
  2. PROZINE (CHLORPROMAZINE HYDROCHLORIDE) [Suspect]
     Active Substance: CHLORPROMAZINE HYDROCHLORIDE
     Dosage: 30 GTT, DAILY
     Route: 048
     Dates: start: 20140408, end: 20140408
  3. DELORAZEPAM [Suspect]
     Active Substance: DELORAZEPAM
     Dosage: 10 ML, DAILY
     Route: 048
     Dates: start: 20140408, end: 20140408
  4. RIVOTRIL [Concomitant]
     Active Substance: CLONAZEPAM
     Dosage: UNK UKN, UNK
  5. ENTUMINE [Suspect]
     Active Substance: CLOTHIAPINE
     Dosage: 15 GTT, DAILY
     Route: 048
     Dates: start: 20140408, end: 20140408
  6. AKINETON [Suspect]
     Active Substance: BIPERIDEN HYDROCHLORIDE
     Dosage: 1 DF, DAILY
     Route: 048
     Dates: start: 20140408, end: 20140408
  7. NOZINAN [Suspect]
     Active Substance: LEVOMEPROMAZINE
     Dosage: 1 DF, DAILY
     Dates: start: 20140408, end: 20140408
  8. LANSOPRAZOLE. [Suspect]
     Active Substance: LANSOPRAZOLE
     Dosage: 1 DF, DAILY
     Route: 048
     Dates: start: 20140408, end: 20140408

REACTIONS (1)
  - Sopor [Recovered/Resolved]

NARRATIVE: CASE EVENT DATE: 20140408
